FAERS Safety Report 9544158 (Version 1)
Quarter: 2013Q3

REPORT INFORMATION
  Report Type: Spontaneous
  Country: FR (occurrence: FR)
  Receive Date: 20130923
  Receipt Date: 20130923
  Transmission Date: 20140515
  Serious: Yes (Other)
  Sender: FDA-Public Use
  Company Number: FR-PFIZER INC-2013270560

PATIENT
  Age: 38 Year
  Sex: Female

DRUGS (9)
  1. XANAX [Suspect]
     Indication: ANAESTHETIC PREMEDICATION
     Dosage: UNK
     Route: 048
     Dates: start: 20121009, end: 20121009
  2. ULTIVA [Suspect]
     Indication: ANAESTHESIA
     Dosage: UNK
     Route: 042
     Dates: start: 20121009, end: 20121009
  3. DIPRIVAN [Suspect]
     Indication: ANAESTHESIA
     Dosage: UNK
     Route: 042
     Dates: start: 20121009, end: 20121009
  4. CELOCURIN [Suspect]
     Indication: ANAESTHESIA
     Dosage: UNK
     Route: 042
     Dates: start: 20121009, end: 20121009
  5. ACUPAN [Suspect]
     Indication: ANALGESIC THERAPY
     Dosage: UNK
     Route: 042
     Dates: start: 20121009, end: 20121009
  6. PERFALGAN [Suspect]
     Indication: ANALGESIC THERAPY
     Dosage: UNK
     Route: 042
     Dates: start: 20121009, end: 20121009
  7. TRACRIUM [Suspect]
     Indication: ANAESTHESIA
     Dosage: UNK
     Route: 042
     Dates: start: 20121009, end: 20121009
  8. DEXAMETHASONE [Suspect]
     Dosage: UNK
     Route: 042
     Dates: start: 20121009, end: 20121009
  9. MORPHINE [Suspect]
     Indication: ANALGESIC THERAPY
     Dosage: UNK
     Route: 042
     Dates: start: 20121009, end: 20121009

REACTIONS (1)
  - Anaphylactic reaction [Recovered/Resolved]
